FAERS Safety Report 13666655 (Version 1)
Quarter: 2017Q2

REPORT INFORMATION
  Report Type: Spontaneous
  Country: US (occurrence: US)
  Receive Date: 20170619
  Receipt Date: 20170619
  Transmission Date: 20170830
  Serious: No
  Sender: FDA-Public Use
  Company Number: US-ROCHE-1445307

PATIENT
  Sex: Male
  Weight: 74 kg

DRUGS (1)
  1. XELODA [Suspect]
     Active Substance: CAPECITABINE
     Indication: APPENDIX CANCER
     Dosage: 4 PO BID
     Route: 048
     Dates: start: 20140222

REACTIONS (2)
  - Nausea [Unknown]
  - Vomiting [Unknown]
